FAERS Safety Report 5253863-4 (Version None)
Quarter: 2007Q1

REPORT INFORMATION
  Report Type: 
  Country: None (occurrence: None)
  Receive Date: 20070227
  Receipt Date: 20070213
  Transmission Date: 20070707
  Serious: Yes (Hospitalization)
  Sender: FDA-Public Use
  Company Number: T200700197

PATIENT
  Sex: Male

DRUGS (2)
  1. METHADOSE [Suspect]
     Indication: BACK PAIN
  2. PROVIGIL [Suspect]

REACTIONS (2)
  - DRUG INTERACTION [None]
  - DRUG WITHDRAWAL SYNDROME [None]
